FAERS Safety Report 14479806 (Version 2)
Quarter: 2018Q1

REPORT INFORMATION
  Report Type: Report from Study
  Country: GB (occurrence: GB)
  Receive Date: 20180202
  Receipt Date: 20180214
  Transmission Date: 20180509
  Serious: Yes (Other)
  Sender: FDA-Public Use
  Company Number: GB-AMGEN-GBRSL2018012624

PATIENT
  Age: 49 Year
  Sex: Male

DRUGS (3)
  1. ARANESP [Suspect]
     Active Substance: DARBEPOETIN ALFA
     Indication: PRODUCT USED FOR UNKNOWN INDICATION
     Dosage: 30 MUG, UNK
     Route: 065
  2. ARANESP [Suspect]
     Active Substance: DARBEPOETIN ALFA
     Dosage: 20 MUG, QWK
     Route: 065
  3. ARANESP [Suspect]
     Active Substance: DARBEPOETIN ALFA
     Dosage: 40 MUG, QWK
     Route: 065
     Dates: start: 201801

REACTIONS (3)
  - Peritoneal dialysis [Unknown]
  - Malaise [Unknown]
  - Migraine [Unknown]

NARRATIVE: CASE EVENT DATE: 20171107
